FAERS Safety Report 22212903 (Version 1)
Quarter: 2023Q2

REPORT INFORMATION
  Report Type: Spontaneous
  Country: US (occurrence: None)
  Receive Date: 20230413
  Receipt Date: 20230413
  Transmission Date: 20230721
  Serious: Yes (Life-Threatening, Hospitalization, Disabling, Congenital Anomaly, Other)
  Sender: FDA-Public Use
  Company Number: None

PATIENT

DRUGS (1)
  1. CANNABIS SATIVA SUBSP. INDICA TOP [Suspect]
     Active Substance: CANNABIS SATIVA SUBSP. INDICA TOP

REACTIONS (7)
  - Schizophrenia [None]
  - Hypertension [None]
  - Limb injury [None]
  - Suicidal ideation [None]
  - Abdominal rigidity [None]
  - Tinea infection [None]
  - Eye disorder [None]

NARRATIVE: CASE EVENT DATE: 20230105
